FAERS Safety Report 10082240 (Version 1)
Quarter: 2014Q2

REPORT INFORMATION
  Report Type: Report from Study
  Country: US (occurrence: US)
  Receive Date: 20140416
  Receipt Date: 20140416
  Transmission Date: 20141212
  Serious: Yes (Hospitalization)
  Sender: FDA-Public Use
  Company Number: PHEH2014US007273

PATIENT
  Age: 8 Year
  Sex: Female
  Weight: 29.25 kg

DRUGS (1)
  1. TOBI PODHALER [Suspect]
     Dosage: 4 DF, BID
     Route: 055
     Dates: start: 20140310

REACTIONS (2)
  - Stridor [Unknown]
  - Dyspnoea [Unknown]
